FAERS Safety Report 4489519-5 (Version None)
Quarter: 2004Q4

REPORT INFORMATION
  Report Type: 
  Country: None (occurrence: None)
  Receive Date: 20041026
  Receipt Date: 20041012
  Transmission Date: 20050328
  Serious: Yes (Hospitalization, Disabling, Other)
  Sender: FDA-Public Use
  Company Number: US_020785720

PATIENT
  Age: 49 Year
  Sex: Male
  Weight: 61 kg

DRUGS (6)
  1. GEMZAR [Suspect]
     Indication: PANCREATIC CARCINOMA
     Dosage: 1000MG
     Route: 042
     Dates: start: 20010719, end: 20020425
  2. BERIZYM [Concomitant]
  3. GASTER           (FAMOTIDINE) [Concomitant]
  4. NAUZELIN (DOMPERIDONE) [Concomitant]
  5. URSO (URSODEOXYCHOLIC ACID) [Concomitant]
  6. LENDORM [Concomitant]

REACTIONS (15)
  - ASCITES [None]
  - BONE MARROW DEPRESSION [None]
  - DECREASED APPETITE [None]
  - HAEMODIALYSIS [None]
  - HAEMOLYTIC ANAEMIA [None]
  - HAEMOLYTIC URAEMIC SYNDROME [None]
  - OEDEMA PERIPHERAL [None]
  - PERICARDIAL EFFUSION [None]
  - PLEURAL EFFUSION [None]
  - POIKILOCYTOSIS [None]
  - RED BLOOD CELL SCHISTOCYTES PRESENT [None]
  - RENAL FAILURE [None]
  - RENAL TUBULAR DISORDER [None]
  - RETICULOCYTE COUNT INCREASED [None]
  - WHITE BLOOD CELL COUNT DECREASED [None]
